FAERS Safety Report 5796608-1 (Version None)
Quarter: 2008Q3

REPORT INFORMATION
  Report Type: 
  Country: None (occurrence: None)
  Receive Date: 20080701
  Receipt Date: 20080623
  Transmission Date: 20090109
  Serious: Yes (Death, Hospitalization)
  Sender: FDA-Public Use
  Company Number: DK-JNJFOC-20080601968

PATIENT
  Sex: Male

DRUGS (5)
  1. REMICADE [Suspect]
     Indication: DRUG USE FOR UNKNOWN INDICATION
     Route: 042
  2. HUMIRA [Suspect]
     Indication: DRUG USE FOR UNKNOWN INDICATION
     Route: 058
  3. PREDNISOLONE [Concomitant]
  4. SALAZOPYRIN [Concomitant]
  5. METHOTREXATE [Concomitant]

REACTIONS (4)
  - CARDIAC FAILURE [None]
  - LUNG NEOPLASM MALIGNANT [None]
  - PNEUMONIA [None]
  - TOE AMPUTATION [None]
